FAERS Safety Report 8066303-7 (Version None)
Quarter: 2012Q1

REPORT INFORMATION
  Report Type: 
  Country: None (occurrence: None)
  Receive Date: 20120124
  Receipt Date: 20120117
  Transmission Date: 20120608
  Serious: Yes (Death, Hospitalization, Disabling)
  Sender: FDA-Public Use
  Company Number: JP-ROCHE-1032225

PATIENT
  Sex: Male

DRUGS (18)
  1. NEUART [Concomitant]
     Indication: PROPHYLAXIS
     Dosage: 0-2DF/DAY
     Route: 042
     Dates: start: 20050601, end: 20050701
  2. SULFAMETHOXAZOLE [Concomitant]
     Indication: PROPHYLAXIS
     Route: 048
     Dates: start: 20050603, end: 20050605
  3. GANCICLOVIR [Concomitant]
     Indication: PROPHYLAXIS
     Route: 042
     Dates: start: 20050601, end: 20050620
  4. FUNGUARD [Concomitant]
     Indication: PROPHYLAXIS
     Route: 042
     Dates: start: 20050601, end: 20050701
  5. LASIX [Concomitant]
     Indication: PROPHYLAXIS
     Dosage: 10MG/HR
     Route: 042
     Dates: start: 20050601, end: 20050606
  6. PREDNISOLONE [Suspect]
     Indication: PROPHYLAXIS AGAINST TRANSPLANT REJECTION
     Dosage: 5-580MG/DAY
     Route: 048
     Dates: start: 20050605, end: 20050714
  7. CYCLOPHOSPHAMIDE [Suspect]
     Indication: PROPHYLAXIS AGAINST TRANSPLANT REJECTION
     Dosage: 50-200MG/DAY
     Route: 048
     Dates: start: 20050616, end: 20050623
  8. MEROPEN (JAPAN) [Concomitant]
     Indication: PROPHYLAXIS
     Route: 042
     Dates: start: 20050609, end: 20050628
  9. MYCOPHENOLATE MOFETIL (CELLCEPT) [Suspect]
     Route: 048
     Dates: start: 20050611, end: 20050617
  10. SIMULECT [Concomitant]
     Indication: LIVER TRANSPLANT REJECTION
     Route: 042
     Dates: start: 20050607, end: 20050607
  11. URSO 250 [Concomitant]
     Indication: PROPHYLAXIS
     Route: 048
     Dates: start: 20050601, end: 20050621
  12. DOPAMINE HCL [Concomitant]
     Indication: PROPHYLAXIS
     Route: 042
     Dates: start: 20050601, end: 20050708
  13. MYCOPHENOLATE MOFETIL (CELLCEPT) [Suspect]
     Indication: PROPHYLAXIS AGAINST TRANSPLANT REJECTION
     Route: 048
     Dates: start: 20050601, end: 20050604
  14. MYCOPHENOLATE MOFETIL (CELLCEPT) [Suspect]
     Route: 048
     Dates: start: 20050605, end: 20050608
  15. MYCOPHENOLATE MOFETIL (CELLCEPT) [Suspect]
     Route: 048
     Dates: start: 20050609, end: 20050610
  16. TACROLIMUS [Suspect]
     Indication: PROPHYLAXIS AGAINST TRANSPLANT REJECTION
     Dosage: 0.5-3MG/DAY
     Route: 048
     Dates: start: 20050616, end: 20050628
  17. HUMULIN R [Concomitant]
     Indication: PROPHYLAXIS
     Route: 042
     Dates: start: 20050609, end: 20050714
  18. DIPRIVAN [Concomitant]
     Indication: PROPHYLAXIS
     Dosage: 0-100MG/HR
     Route: 042
     Dates: start: 20050601, end: 20050629

REACTIONS (3)
  - INFECTION [None]
  - GASTROINTESTINAL HAEMORRHAGE [None]
  - HEPATIC FAILURE [None]
